FAERS Safety Report 16230329 (Version 2)
Quarter: 2019Q3

REPORT INFORMATION
  Report Type: Spontaneous
  Country: US (occurrence: US)
  Receive Date: 20190423
  Receipt Date: 20190913
  Transmission Date: 20191004
  Serious: Yes (Other)
  Sender: FDA-Public Use
  Company Number: US-PFIZER INC-2019166899

PATIENT
  Age: 7 Year
  Sex: Female
  Weight: 19.5 kg

DRUGS (3)
  1. TRILEPTAL [Concomitant]
     Active Substance: OXCARBAZEPINE
     Indication: SEIZURE
     Dosage: MAX DOSE
  2. KEPPRA [Concomitant]
     Active Substance: LEVETIRACETAM
     Indication: SEIZURE
     Dosage: MAX DOSE
  3. RAPAMUNE [Suspect]
     Active Substance: SIROLIMUS
     Indication: CEREBRAL ARTERIOVENOUS MALFORMATION HAEMORRHAGIC
     Dosage: 0.4 ML, 2X/DAY
     Route: 048
     Dates: start: 201812

REACTIONS (5)
  - Product use issue [Unknown]
  - Off label use [Unknown]
  - Product use in unapproved indication [Unknown]
  - Drug level below therapeutic [Unknown]
  - Wrong technique in product usage process [Unknown]
